FAERS Safety Report 7743923-8 (Version None)
Quarter: 2011Q3

REPORT INFORMATION
  Report Type: 
  Country: None (occurrence: None)
  Receive Date: 20110912
  Receipt Date: 20110907
  Transmission Date: 20111222
  Serious: Yes (Other)
  Sender: FDA-Public Use
  Company Number: JP-GLAXOSMITHKLINE-B0714616A

PATIENT
  Sex: Female

DRUGS (2)
  1. BESTRON [Concomitant]
     Route: 031
  2. ZOVIRAX [Suspect]
     Indication: KERATITIS HERPETIC
     Route: 031
     Dates: start: 20110413, end: 20110415

REACTIONS (4)
  - VISUAL ACUITY REDUCED [None]
  - CORNEAL EROSION [None]
  - CORNEAL OPACITY [None]
  - EYE PAIN [None]
